FAERS Safety Report 8141802-8 (Version None)
Quarter: 2012Q1

REPORT INFORMATION
  Report Type: 
  Country: None (occurrence: None)
  Receive Date: 20120216
  Receipt Date: 20120206
  Transmission Date: 20120608
  Serious: Yes (Other)
  Sender: FDA-Public Use
  Company Number: DE-ELI_LILLY_AND_COMPANY-DE201202001708

PATIENT
  Sex: Female

DRUGS (5)
  1. FORTEO [Suspect]
     Indication: OSTEOPOROSIS
     Dosage: UNK, QD
     Route: 058
     Dates: start: 20120118, end: 20120122
  2. VOLTAREN [Concomitant]
  3. HUMIRA [Concomitant]
  4. CORTISONE ACETATE [Concomitant]
  5. VITAMIN D [Concomitant]

REACTIONS (5)
  - PALPITATIONS [None]
  - NAUSEA [None]
  - THROAT TIGHTNESS [None]
  - DIZZINESS [None]
  - DYSPNOEA [None]
